FAERS Safety Report 7147462-7 (Version None)
Quarter: 2010Q4

REPORT INFORMATION
  Report Type: 
  Country: None (occurrence: None)
  Receive Date: 20101209
  Receipt Date: 20101202
  Transmission Date: 20110411
  Serious: Yes (Other)
  Sender: FDA-Public Use
  Company Number: US-BIOGENIDEC-2010BI006519

PATIENT
  Age: 39 Year
  Sex: Female

DRUGS (5)
  1. TYSABRI [Suspect]
     Indication: MULTIPLE SCLEROSIS
     Route: 042
     Dates: start: 20080404, end: 20080819
  2. TYSABRI [Suspect]
     Route: 042
     Dates: start: 20090127, end: 20100125
  3. PRENATAL VITAMINS [Concomitant]
  4. ADDERALL 10 [Concomitant]
  5. NUVARING [Concomitant]
     Indication: CONTRACEPTION

REACTIONS (2)
  - BREECH PRESENTATION [None]
  - PREGNANCY [None]
